FAERS Safety Report 4593558-3 (Version None)
Quarter: 2005Q1

REPORT INFORMATION
  Report Type: 
  Country: None (occurrence: None)
  Receive Date: 20050224
  Receipt Date: 20040901
  Transmission Date: 20050727
  Serious: No
  Sender: FDA-Public Use
  Company Number: US-BRISTOL-MYERS SQUIBB COMPANY-12692166

PATIENT
  Sex: Male

DRUGS (1)
  1. EXCEDRIN (MIGRAINE) [Suspect]
     Indication: BACK PAIN
     Dosage: 2 TABLETS EVERY 6-8 HOURS.  28 AND 29 OF AUG REPORTED AS START DATE.
     Route: 048
     Dates: start: 20040801

REACTIONS (4)
  - ABDOMINAL PAIN [None]
  - CHROMATURIA [None]
  - DRUG INEFFECTIVE [None]
  - VOMITING [None]
